FAERS Safety Report 18579115 (Version 1)
Quarter: 2020Q4

REPORT INFORMATION
  Report Type: Spontaneous
  Country: US (occurrence: US)
  Receive Date: 20201203
  Receipt Date: 20201203
  Transmission Date: 20210114
  Serious: No
  Sender: FDA-Public Use
  Company Number: None

PATIENT
  Age: 60 Year
  Sex: Female
  Weight: 42.6 kg

DRUGS (11)
  1. LISINOPRIL. [Concomitant]
     Active Substance: LISINOPRIL
  2. FASLODEX [Concomitant]
     Active Substance: FULVESTRANT
  3. VENTOLIN HFA [Concomitant]
     Active Substance: ALBUTEROL SULFATE
  4. XGEVA [Concomitant]
     Active Substance: DENOSUMAB
  5. ASPIRIN LOW DOSE [Concomitant]
     Active Substance: ASPIRIN
  6. IBUPROFEN. [Concomitant]
     Active Substance: IBUPROFEN
  7. IBRANCE [Suspect]
     Active Substance: PALBOCICLIB
     Indication: BREAST CANCER
     Route: 048
     Dates: start: 20201109, end: 20201203
  8. LANTUS SOLOSTAR [Concomitant]
     Active Substance: INSULIN GLARGINE
  9. SENNA LAXATIVE [Concomitant]
     Active Substance: SENNOSIDES
  10. ATORVASTATIN CALCIUM. [Concomitant]
     Active Substance: ATORVASTATIN CALCIUM
  11. METFORMIN HCL [Concomitant]
     Active Substance: METFORMIN HYDROCHLORIDE

REACTIONS (2)
  - Platelet count decreased [None]
  - White blood cell count decreased [None]

NARRATIVE: CASE EVENT DATE: 20201203
